FAERS Safety Report 11830492 (Version 1)
Quarter: 2015Q4

REPORT INFORMATION
  Report Type: Other
  Country: GB (occurrence: GB)
  Receive Date: 20151214
  Receipt Date: 20151214
  Transmission Date: 20160305
  Serious: Yes (Life-Threatening, Hospitalization, Other)
  Sender: FDA-Public Use
  Company Number: GB-JUBILANT GENERICS LIMITED-1045419

PATIENT
  Age: 86 Year
  Sex: Male

DRUGS (1)
  1. DONEPEZIL HYDROCHLORIDE. [Suspect]
     Active Substance: DONEPEZIL HYDROCHLORIDE

REACTIONS (5)
  - Duodenal ulcer haemorrhage [Recovered/Resolved]
  - Shock [Recovered/Resolved]
  - Mobility decreased [Recovered/Resolved]
  - Anaemia [Recovered/Resolved]
  - Cognitive disorder [Recovered/Resolved]

NARRATIVE: CASE EVENT DATE: 20151130
